FAERS Safety Report 8800152 (Version 4)
Quarter: 2013Q3

REPORT INFORMATION
  Report Type: Spontaneous
  Country: US (occurrence: US)
  Receive Date: 20120921
  Receipt Date: 20130917
  Transmission Date: 20140515
  Serious: Yes (Other)
  Sender: FDA-Public Use
  Company Number: US-009507513-2012SP031679

PATIENT
  Age: 49 Year
  Sex: Male
  Weight: 86.18 kg

DRUGS (1)
  1. SAPHRIS [Suspect]
     Indication: DEPRESSION
     Dosage: 5 MG DAILY
     Route: 060
     Dates: start: 20120217, end: 20120219

REACTIONS (21)
  - Irritability [Not Recovered/Not Resolved]
  - Confusional state [Not Recovered/Not Resolved]
  - Feeling hot [Not Recovered/Not Resolved]
  - Feeling cold [Not Recovered/Not Resolved]
  - Headache [Not Recovered/Not Resolved]
  - Dysphemia [Not Recovered/Not Resolved]
  - Speech disorder [Recovering/Resolving]
  - Panic disorder [Not Recovered/Not Resolved]
  - Thought blocking [Not Recovered/Not Resolved]
  - Dysarthria [Not Recovered/Not Resolved]
  - Nervous system disorder [Unknown]
  - Memory impairment [Unknown]
  - Liver injury [Unknown]
  - Renal impairment [Unknown]
  - Ammonia increased [Unknown]
  - Hypertension [Unknown]
  - Abdominal adhesions [Unknown]
  - Polyp [Unknown]
  - Underdose [Unknown]
  - Dyskinesia [Unknown]
  - Off label use [Unknown]
